FAERS Safety Report 5691802-2 (Version None)
Quarter: 2008Q2

REPORT INFORMATION
  Report Type: 
  Country: None (occurrence: None)
  Receive Date: 20080402
  Receipt Date: 20080325
  Transmission Date: 20081010
  Serious: Yes (Hospitalization)
  Sender: FDA-Public Use
  Company Number: FR-ROCHE-555448

PATIENT
  Age: 46 Year
  Sex: Female

DRUGS (3)
  1. RIVOTRIL [Suspect]
     Indication: DRUG USE FOR UNKNOWN INDICATION
     Route: 048
     Dates: start: 20070425
  2. NOCTRAN 10 [Suspect]
     Indication: DRUG USE FOR UNKNOWN INDICATION
     Route: 048
     Dates: start: 20070425
  3. LEVOTHYROXINE SODIUM [Suspect]
     Indication: DRUG USE FOR UNKNOWN INDICATION
     Route: 048
     Dates: start: 20070425

REACTIONS (2)
  - DEPRESSED LEVEL OF CONSCIOUSNESS [None]
  - THYROXINE INCREASED [None]
